FAERS Safety Report 22018645 (Version 2)
Quarter: 2023Q1

REPORT INFORMATION
  Report Type: Spontaneous
  Country: AR (occurrence: AR)
  Receive Date: 20230222
  Receipt Date: 20230225
  Transmission Date: 20230418
  Serious: Yes (Death, Other)
  Sender: FDA-Public Use
  Company Number: AR-AUROBINDO-AUR-APL-2023-008544

PATIENT
  Age: 70 Year
  Sex: Male

DRUGS (1)
  1. BELEODAQ [Suspect]
     Active Substance: BELINOSTAT
     Indication: Peripheral T-cell lymphoma unspecified
     Dosage: 1000 MILLIGRAM/SQ. METER, DAILY
     Route: 042
     Dates: start: 20221223

REACTIONS (2)
  - Disease progression [Fatal]
  - Drug ineffective [Unknown]
